FAERS Safety Report 19712762 (Version 2)
Quarter: 2021Q3

REPORT INFORMATION
  Report Type: Spontaneous
  Country: TR (occurrence: TR)
  Receive Date: 20210816
  Receipt Date: 20210902
  Transmission Date: 20211014
  Serious: Yes (Other)
  Sender: FDA-Public Use
  Company Number: NVSC2021TR184144

PATIENT
  Age: 66 Year
  Sex: Female

DRUGS (2)
  1. ONEPTUS [Suspect]
     Active Substance: SACUBITRIL\VALSARTAN
     Indication: HYPERTENSION
  2. ONEPTUS [Suspect]
     Active Substance: SACUBITRIL\VALSARTAN
     Indication: CARDIAC FAILURE
     Dosage: 1 DF, BID
     Route: 048
     Dates: start: 20210620, end: 20210810

REACTIONS (6)
  - Inflammation [Recovered/Resolved]
  - Blood creatinine increased [Recovered/Resolved]
  - Oedema [Recovered/Resolved]
  - Pustule [Recovered/Resolved]
  - Swelling [Unknown]
  - Renal disorder [Unknown]
